FAERS Safety Report 26073010 (Version 1)
Quarter: 2025Q4

REPORT INFORMATION
  Report Type: Report from Study
  Country: ZA (occurrence: ZA)
  Receive Date: 20251121
  Receipt Date: 20251121
  Transmission Date: 20260119
  Serious: Yes (Other)
  Sender: ROCHE
  Company Number: ZA-ROCHE-10000069554

PATIENT
  Sex: Female

DRUGS (3)
  1. VABYSMO [Suspect]
     Active Substance: FARICIMAB-SVOA
     Indication: Macular degeneration
     Dosage: SECOND INJECTION: 27-MAR-2025?THIRD INJECTION:  24-APR-2025?FOURTH INJECTION: 24-JUL-2025
     Route: 050
     Dates: start: 20250220
  2. AVASTIN [Concomitant]
     Active Substance: BEVACIZUMAB
  3. EYLEA [Concomitant]
     Active Substance: AFLIBERCEPT

REACTIONS (4)
  - Optical coherence tomography abnormal [Unknown]
  - Visual acuity reduced [Unknown]
  - Retinal thickening [Unknown]
  - Off label use [Unknown]
